FAERS Safety Report 17866104 (Version 1)
Quarter: 2020Q2

REPORT INFORMATION
  Report Type: Spontaneous
  Country: US (occurrence: US)
  Receive Date: 20200605
  Receipt Date: 20200605
  Transmission Date: 20200714
  Serious: Yes (Disabling)
  Sender: FDA-Public Use
  Company Number: None

PATIENT
  Age: 50 Year
  Sex: Male
  Weight: 105.75 kg

DRUGS (1)
  1. COLD-EEZE (ZINC GLUCONATE) [Suspect]
     Active Substance: HOMEOPATHICS\ZINC GLUCONATE
     Indication: OROPHARYNGEAL PAIN
     Dosage: ?          QUANTITY:1 LOZENGE;?
     Route: 048
     Dates: start: 20200530, end: 20200604

REACTIONS (3)
  - Hypoaesthesia [None]
  - Sinus disorder [None]
  - Anosmia [None]

NARRATIVE: CASE EVENT DATE: 20200604
